FAERS Safety Report 9438673 (Version 2)
Quarter: 2013Q3

REPORT INFORMATION
  Report Type: Report from Study
  Country: AT (occurrence: AT)
  Receive Date: 20130802
  Receipt Date: 20130816
  Transmission Date: 20140515
  Serious: Yes (Hospitalization)
  Sender: FDA-Public Use
  Company Number: AT-AMGEN-AUTCT2013053943

PATIENT
  Age: 66 Year
  Sex: Female

DRUGS (2)
  1. DENOSUMAB [Suspect]
     Indication: BONE DENSITY DECREASED
     Dosage: 60 MG, Q6MO
     Route: 058
     Dates: start: 20110331
  2. FEMARA [Concomitant]
     Dosage: 2.5 MG, QD
     Route: 048
     Dates: start: 20110210, end: 20130802

REACTIONS (1)
  - Metastases to bone [Recovering/Resolving]
